FAERS Safety Report 8414859-4 (Version None)
Quarter: 2012Q2

REPORT INFORMATION
  Report Type: 
  Country: None (occurrence: None)
  Receive Date: 20120606
  Receipt Date: 20120526
  Transmission Date: 20120825
  Serious: Yes (Other)
  Sender: FDA-Public Use
  Company Number: TR-PAR PHARMACEUTICAL, INC-2012SCPR004402

PATIENT

DRUGS (2)
  1. DULOXETIME HYDROCHLORIDE [Interacting]
     Indication: PANIC DISORDER
     Dosage: 60 MG, / DAY
     Route: 065
  2. CIPROFLOXACIN EXTENDED RELEASE [Suspect]
     Indication: URINARY TRACT DISORDER
     Dosage: 750 MG, BID
     Route: 065

REACTIONS (2)
  - DRUG INTERACTION [None]
  - SEROTONIN SYNDROME [None]
